FAERS Safety Report 5694122-5 (Version None)
Quarter: 2008Q2

REPORT INFORMATION
  Report Type: 
  Country: None (occurrence: None)
  Receive Date: 20080403
  Receipt Date: 20080326
  Transmission Date: 20081010
  Serious: Yes (Other)
  Sender: FDA-Public Use
  Company Number: PT-ABBOTT-08P-130-0438694-00

PATIENT
  Sex: Female
  Weight: 60 kg

DRUGS (5)
  1. KLACID OD [Suspect]
     Indication: TOOTH ABSCESS
     Route: 048
     Dates: start: 20071118, end: 20071123
  2. ACETAMINOPHEN [Suspect]
     Indication: TOOTH ABSCESS
     Route: 048
     Dates: start: 20071118, end: 20071123
  3. TRAMADOL HCL [Interacting]
     Indication: TOOTH ABSCESS
     Route: 048
     Dates: start: 20071118, end: 20071123
  4. MAPROTILINE HYDROCHLORIDE [Concomitant]
     Indication: DEPRESSION
     Route: 048
     Dates: start: 20060101
  5. ALPRAZOLAM [Concomitant]
     Indication: DEPRESSION
     Route: 048
     Dates: start: 20060101

REACTIONS (3)
  - DRUG INEFFECTIVE [None]
  - DRUG INTERACTION [None]
  - INFECTION IN AN IMMUNOCOMPROMISED HOST [None]
